FAERS Safety Report 9058626 (Version 2)
Quarter: 2013Q1

REPORT INFORMATION
  Report Type: Report from Study
  Country: CA (occurrence: CA)
  Receive Date: 20130211
  Receipt Date: 20130325
  Transmission Date: 20140127
  Serious: Yes (Other)
  Sender: FDA-Public Use
  Company Number: CA-JNJFOC-20130202383

PATIENT
  Sex: Female
  Weight: 103 kg

DRUGS (12)
  1. REMICADE [Suspect]
     Indication: CROHN^S DISEASE
     Route: 042
  2. REMICADE [Suspect]
     Indication: CROHN^S DISEASE
     Route: 042
  3. METFORMIN [Concomitant]
     Indication: DIABETES MELLITUS
     Route: 065
  4. VICTOZA [Concomitant]
     Indication: DIABETES MELLITUS
     Route: 065
  5. ATACAND [Concomitant]
     Indication: HYPERTENSION
     Route: 065
  6. CRESTOR [Concomitant]
     Indication: BLOOD CHOLESTEROL
     Route: 065
  7. PROZAC [Concomitant]
     Indication: DEPRESSION
     Route: 065
  8. WELLBUTRIN [Concomitant]
     Indication: DEPRESSION
     Route: 065
  9. ASA [Concomitant]
     Route: 065
  10. NITRO SPRAY [Concomitant]
     Route: 065
  11. CHLORTHALIDONE [Concomitant]
     Route: 065
  12. BISOPROLOL [Concomitant]
     Route: 065

REACTIONS (3)
  - Cardiac disorder [Unknown]
  - Crohn^s disease [Unknown]
  - Weight decreased [Unknown]
